FAERS Safety Report 15210848 (Version 1)
Quarter: 2018Q3

REPORT INFORMATION
  Report Type: Spontaneous
  Country: US (occurrence: US)
  Receive Date: 20180629
  Receipt Date: 20180629
  Transmission Date: 20181010
  Serious: Yes (Congenital Anomaly)
  Sender: FDA-Public Use
  Company Number: None

PATIENT
  Age: 31 Year
  Sex: Male
  Weight: 78.75 kg

DRUGS (1)
  1. BUPROPION XL [Suspect]
     Active Substance: BUPROPION
     Route: 048

REACTIONS (4)
  - Agitation [None]
  - Sensation of foreign body [None]
  - Akathisia [None]
  - Anxiety [None]

NARRATIVE: CASE EVENT DATE: 20180627
